FAERS Safety Report 7057105-9 (Version None)
Quarter: 2010Q4

REPORT INFORMATION
  Report Type: 
  Country: None (occurrence: None)
  Receive Date: 20101022
  Receipt Date: 20101013
  Transmission Date: 20110411
  Serious: Yes (Other)
  Sender: FDA-Public Use
  Company Number: US-JNJFOC-20100904081

PATIENT
  Sex: Female

DRUGS (11)
  1. REMICADE [Suspect]
     Indication: CROHN'S DISEASE
     Route: 042
  2. CIMZIA [Suspect]
     Indication: CROHN'S DISEASE
  3. CIMZIA [Suspect]
  4. CIMZIA [Suspect]
  5. MICROGESTIN 1.5/30 [Concomitant]
  6. CALCIUM SUPPLEMENT + VITAMIN D [Concomitant]
     Dosage: 600/400 BID
  7. GLUCOSAMINE/MSM [Concomitant]
     Dosage: 1500/1500 BID
  8. FOLIC ACID [Concomitant]
  9. FERROUS GLUCONATE [Concomitant]
  10. MAGNESIUM [Concomitant]
  11. CLARITIN [Concomitant]

REACTIONS (3)
  - APHASIA [None]
  - COGNITIVE DISORDER [None]
  - DEMYELINATION [None]
